FAERS Safety Report 10712809 (Version 1)
Quarter: 2015Q1

REPORT INFORMATION
  Report Type: Report from Study
  Country: CO (occurrence: None)
  Receive Date: 20150113
  Receipt Date: 20150113
  Transmission Date: 20150721
  Serious: Yes (Hospitalization, Other)
  Sender: FDA-Public Use
  Company Number: 2015-10169

PATIENT
  Age: 48 Year
  Sex: Female

DRUGS (1)
  1. EYLEA [Suspect]
     Active Substance: AFLIBERCEPT
     Indication: AGE-RELATED MACULAR DEGENERATION
     Dosage: FIRST INJECTION
     Route: 031
     Dates: start: 20130512, end: 20130512

REACTIONS (2)
  - Inappropriate schedule of drug administration [None]
  - Systemic lupus erythematosus [None]

NARRATIVE: CASE EVENT DATE: 20140415
